FAERS Safety Report 8076105-3 (Version None)
Quarter: 2012Q1

REPORT INFORMATION
  Report Type: 
  Country: None (occurrence: None)
  Receive Date: 20120127
  Receipt Date: 20110830
  Transmission Date: 20120608
  Serious: No
  Sender: FDA-Public Use
  Company Number: US-GLAXOSMITHKLINE-A0943594A

PATIENT
  Age: 47 Year
  Sex: Female

DRUGS (1)
  1. WELLBUTRIN XL [Suspect]
     Dosage: 600MG SEE DOSAGE TEXT
     Route: 048

REACTIONS (4)
  - BALANCE DISORDER [None]
  - TREMOR [None]
  - DIZZINESS [None]
  - ACCIDENTAL OVERDOSE [None]
